FAERS Safety Report 16826548 (Version 3)
Quarter: 2020Q1

REPORT INFORMATION
  Report Type: Spontaneous
  Country: US (occurrence: US)
  Receive Date: 20190919
  Receipt Date: 20200220
  Transmission Date: 20200409
  Serious: Yes (Other)
  Sender: FDA-Public Use
  Company Number: US-MYLANLABS-2019M1087486

PATIENT
  Sex: Male
  Weight: 106.59 kg

DRUGS (11)
  1. VALSARTAN. [Suspect]
     Active Substance: VALSARTAN
     Indication: HYPERTENSION
     Dosage: 160 MILLIGRAM
     Dates: start: 20170925, end: 20180621
  2. FUROSEMIDE. [Concomitant]
     Active Substance: FUROSEMIDE
     Indication: DIURETIC THERAPY
     Dosage: UNK UNK, BID, 180 TABS, 2 DAILY EVERY 3 MONTHS
     Dates: start: 20170914
  3. CLOPIDOGREL [Concomitant]
     Active Substance: CLOPIDOGREL BISULFATE
     Indication: ANTICOAGULANT THERAPY
     Dosage: UNK UNK, QD, 30 TABS 1 DAILY EVERY MONTH
     Dates: start: 20130214
  4. ATORVASTATIN [Concomitant]
     Active Substance: ATORVASTATIN
     Dosage: UNK
  5. HYDROCHLOROTHIAZIDE. [Concomitant]
     Active Substance: HYDROCHLOROTHIAZIDE
     Indication: HYPERTENSION
     Dosage: UNK UNK, QD, 30 TBACS 1 DAILY EVERY MONTH
     Dates: start: 20130204, end: 20170609
  6. XARELTO [Concomitant]
     Active Substance: RIVAROXABAN
     Indication: ANTICOAGULANT THERAPY
     Dosage: UNK UNK, QD, 90 TABS 1 DAILY, EERY 3 MONTH
     Dates: start: 20160331, end: 20181203
  7. METOPROLOLSUCCINAAT [Concomitant]
     Active Substance: METOPROLOL SUCCINATE
     Indication: HYPERTENSION
     Dosage: UNK UNK, QD, 30 TABS 1 DAILY EVERY MONTH, ER
     Dates: start: 20130215
  8. VITAMIN B12 [Concomitant]
     Active Substance: CYANOCOBALAMIN
  9. FOLIC ACID. [Concomitant]
     Active Substance: FOLIC ACID
     Indication: ANAEMIA
     Dosage: UNK UNK, QD, 30 TABLETS 1DAILY EVERY MONTH
     Dates: start: 20130214
  10. RAMIPRIL. [Concomitant]
     Active Substance: RAMIPRIL
     Indication: BLOOD PRESSURE ABNORMAL
     Dosage: UNK UNK, QD, 60 TABS 2 DAILY EVERY MONTH
     Dates: start: 20130214, end: 20170609
  11. IRON FERROUS [Concomitant]
     Indication: ANAEMIA
     Dosage: UNK

REACTIONS (2)
  - Colon cancer stage III [Unknown]
  - Bladder cancer [Unknown]
